FAERS Safety Report 12115295 (Version 1)
Quarter: 2016Q1

REPORT INFORMATION
  Report Type: Spontaneous
  Country: US (occurrence: US)
  Receive Date: 20160225
  Receipt Date: 20160225
  Transmission Date: 20160526
  Serious: No
  Sender: FDA-Public Use
  Company Number: US-CELGENEUS-USA-2016022579

PATIENT
  Sex: Female

DRUGS (1)
  1. THALOMID [Suspect]
     Active Substance: THALIDOMIDE
     Indication: CROHN^S DISEASE
     Dosage: 100 MILLIGRAM
     Route: 048
     Dates: start: 201306

REACTIONS (5)
  - Abdominal pain [Unknown]
  - Eating disorder [Unknown]
  - Inflammatory marker increased [Unknown]
  - Blood creatinine increased [Unknown]
  - Weight increased [Unknown]
